FAERS Safety Report 25059837 (Version 1)
Quarter: 2025Q1

REPORT INFORMATION
  Report Type: Spontaneous
  Country: CN (occurrence: CN)
  Receive Date: 20250310
  Receipt Date: 20250310
  Transmission Date: 20250409
  Serious: Yes (Hospitalization)
  Sender: JUBILANT
  Company Number: CN-JUBILANT CADISTA PHARMACEUTICALS-2025JUB00023

PATIENT
  Age: 67 Year
  Sex: Male

DRUGS (7)
  1. MYCOPHENOLATE MOFETIL [Suspect]
     Active Substance: MYCOPHENOLATE MOFETIL
     Dosage: 1 G, 2X/DAY
  2. TACROLIMUS [Suspect]
     Active Substance: TACROLIMUS
     Dosage: 5 MG, 2X/DAY
  3. TACROLIMUS [Suspect]
     Active Substance: TACROLIMUS
     Dosage: 3 MG, 2X/DAY
  4. TACROLIMUS [Suspect]
     Active Substance: TACROLIMUS
     Dosage: 5 MG, 2X/DAY
  5. CISPLATIN\ETOPOSIDE [Concomitant]
     Active Substance: CISPLATIN\ETOPOSIDE
  6. URSODIOL [Concomitant]
     Active Substance: URSODIOL
  7. METHYLPREDNISOLONE [Concomitant]
     Active Substance: METHYLPREDNISOLONE

REACTIONS (2)
  - Immune-mediated hepatitis [Unknown]
  - Disease recurrence [Unknown]
